FAERS Safety Report 15401084 (Version 2)
Quarter: 2019Q4

REPORT INFORMATION
  Report Type: Spontaneous
  Country: US (occurrence: US)
  Receive Date: 20180919
  Receipt Date: 20191025
  Transmission Date: 20200122
  Serious: Yes (Other)
  Sender: FDA-Public Use
  Company Number: US-AMGEN-USASP2018126946

PATIENT
  Age: 62 Year
  Sex: Female

DRUGS (5)
  1. HYDROCODONE [Concomitant]
     Active Substance: HYDROCODONE
     Indication: ABDOMINAL PAIN
  2. HYDROCODONE [Concomitant]
     Active Substance: HYDROCODONE
     Indication: CHEST PAIN
  3. HERCEPTIN [Concomitant]
     Active Substance: TRASTUZUMAB
     Indication: PRODUCT USED FOR UNKNOWN INDICATION
     Route: 065
  4. HYDROCODONE [Concomitant]
     Active Substance: HYDROCODONE
     Indication: PAIN
     Dosage: UNK
  5. NEULASTA [Suspect]
     Active Substance: PEGFILGRASTIM
     Indication: PRODUCT USED FOR UNKNOWN INDICATION
     Dosage: UNK, AFTER CHEMO
     Route: 065
     Dates: start: 20180905

REACTIONS (21)
  - Haematemesis [Unknown]
  - Pain [Unknown]
  - Chest pain [Recovered/Resolved]
  - Skin odour abnormal [Unknown]
  - Asthenia [Not Recovered/Not Resolved]
  - Dizziness [Unknown]
  - Anaemia [Unknown]
  - Musculoskeletal discomfort [Not Recovered/Not Resolved]
  - Fall [Unknown]
  - Diarrhoea [Not Recovered/Not Resolved]
  - Swelling face [Unknown]
  - Application site pain [Unknown]
  - Abdominal pain [Not Recovered/Not Resolved]
  - Hypoaesthesia [Unknown]
  - Loss of consciousness [Unknown]
  - Blood urine present [Unknown]
  - Feeling abnormal [Unknown]
  - Flushing [Unknown]
  - Gastrointestinal haemorrhage [Unknown]
  - Feeling hot [Unknown]
  - Erythema [Unknown]

NARRATIVE: CASE EVENT DATE: 201809
